FAERS Safety Report 18932999 (Version 3)
Quarter: 2021Q3

REPORT INFORMATION
  Report Type: Spontaneous
  Country: US (occurrence: US)
  Receive Date: 20210224
  Receipt Date: 20210824
  Transmission Date: 20211014
  Serious: Yes (Other)
  Sender: FDA-Public Use
  Company Number: US-PFIZER INC-2021155056

PATIENT
  Age: 58 Year
  Sex: Female

DRUGS (1)
  1. LYRICA [Suspect]
     Active Substance: PREGABALIN
     Indication: RHEUMATOID ARTHRITIS
     Dosage: 50 MG, 3X/DAY (1 CAP(S) 3 TIMES A DAY 90 DAYS)
     Route: 048

REACTIONS (4)
  - COVID-19 [Unknown]
  - Off label use [Unknown]
  - Memory impairment [Unknown]
  - Nervous system disorder [Unknown]
